FAERS Safety Report 11291588 (Version 2)
Quarter: 2015Q3

REPORT INFORMATION
  Report Type: Spontaneous
  Country: US (occurrence: US)
  Receive Date: 20150722
  Receipt Date: 20150824
  Transmission Date: 20151125
  Serious: No
  Sender: FDA-Public Use
  Company Number: US-BAYER-2015-383626

PATIENT
  Sex: Male

DRUGS (1)
  1. BETASERON [Suspect]
     Active Substance: INTERFERON BETA-1B
     Dosage: UNK
     Dates: start: 199409

REACTIONS (4)
  - Anti-interferon antibody positive [None]
  - Drug ineffective [None]
  - Influenza like illness [None]
  - Injection site rash [None]

NARRATIVE: CASE EVENT DATE: 199409
